FAERS Safety Report 17961316 (Version 1)
Quarter: 2020Q2

REPORT INFORMATION
  Report Type: Spontaneous
  Country: US (occurrence: US)
  Receive Date: 20200629
  Receipt Date: 20200629
  Transmission Date: 20200714
  Serious: No
  Sender: FDA-Public Use
  Company Number: US-ROCHE-2410530

PATIENT
  Sex: Female

DRUGS (1)
  1. XELODA [Suspect]
     Active Substance: CAPECITABINE
     Indication: OVARIAN CANCER
     Dosage: FOR TWO WEEKS
     Route: 048
     Dates: start: 20190816

REACTIONS (9)
  - Insomnia [Unknown]
  - Nausea [Unknown]
  - Paraesthesia [Unknown]
  - Fatigue [Unknown]
  - Confusional state [Unknown]
  - Constipation [Unknown]
  - Headache [Unknown]
  - Irritability [Unknown]
  - Hunger [Unknown]
